FAERS Safety Report 7187026-2 (Version None)
Quarter: 2010Q4

REPORT INFORMATION
  Report Type: 
  Country: None (occurrence: None)
  Receive Date: 20101222
  Receipt Date: 20100722
  Transmission Date: 20110411
  Serious: No
  Sender: FDA-Public Use
  Company Number: US-AMGEN-KDL417543

PATIENT

DRUGS (9)
  1. ENBREL [Suspect]
     Indication: PSORIASIS
     Dosage: 50 MG, QWK
     Route: 058
     Dates: start: 20100527
  2. ENBREL [Suspect]
     Indication: PSORIATIC ARTHROPATHY
  3. ERGOCALCIFEROL [Concomitant]
  4. METHYLPREDNISOLONE [Concomitant]
     Dosage: UNK UNK, UNK
     Dates: start: 20100528, end: 20100603
  5. SERTRALINE HYDROCHLORIDE [Concomitant]
     Dosage: 50 MG, QD
  6. EXCEDRIN (MIGRAINE) [Concomitant]
  7. AMLODIPINE [Concomitant]
     Dosage: 10 MG, UNK
  8. HYDROCHLOROTHIAZIDE [Concomitant]
     Dosage: 25 MG, UNK
  9. ATENOLOL [Concomitant]
     Dosage: 25 MG, UNK

REACTIONS (10)
  - BODY TEMPERATURE INCREASED [None]
  - CHILLS [None]
  - DECREASED APPETITE [None]
  - DRUG INEFFECTIVE [None]
  - EYE SWELLING [None]
  - FATIGUE [None]
  - INJECTION SITE ERYTHEMA [None]
  - INJECTION SITE PRURITUS [None]
  - NAUSEA [None]
  - SWELLING FACE [None]
